FAERS Safety Report 4526762-0 (Version None)
Quarter: 2004Q4

REPORT INFORMATION
  Report Type: 
  Country: None (occurrence: None)
  Receive Date: 20041213
  Receipt Date: 20041203
  Transmission Date: 20050328
  Serious: Yes (Other)
  Sender: FDA-Public Use
  Company Number: 200415427BCC

PATIENT
  Age: 53 Year
  Sex: Female
  Weight: 77.5651 kg

DRUGS (6)
  1. ALEVE [Suspect]
     Indication: FRACTURE
     Dosage: 440 MG, HS, ORAL
     Route: 048
     Dates: start: 20040801, end: 20041005
  2. ALEVE [Suspect]
     Indication: PAIN
     Dosage: 440 MG, HS, ORAL
     Route: 048
     Dates: start: 20040801, end: 20041005
  3. ATIVAN [Concomitant]
  4. IPATROPIUM BROMIDE [Concomitant]
  5. NEXIUM [Concomitant]
  6. ALPRAZOLAM [Concomitant]

REACTIONS (5)
  - ASTHENIA [None]
  - DIZZINESS POSTURAL [None]
  - DYSPNOEA [None]
  - POSTMENOPAUSAL HAEMORRHAGE [None]
  - VAGINAL HAEMORRHAGE [None]
